FAERS Safety Report 4482406-8 (Version None)
Quarter: 2004Q4

REPORT INFORMATION
  Report Type: 
  Country: None (occurrence: None)
  Receive Date: 20041022
  Receipt Date: 20040614
  Transmission Date: 20050328
  Serious: No
  Sender: FDA-Public Use
  Company Number: US-BRISTOL-MYERS SQUIBB COMPANY-12615225

PATIENT

DRUGS (2)
  1. BUSPAR [Suspect]
  2. PROZAC [Concomitant]

REACTIONS (1)
  - CONTUSION [None]
